FAERS Safety Report 5673933-6 (Version None)
Quarter: 2008Q2

REPORT INFORMATION
  Report Type: 
  Country: None (occurrence: None)
  Receive Date: 20080226
  Receipt Date: 20080110
  Transmission Date: 20081010
  Serious: No
  Sender: FDA-Public Use
  Company Number: US-JNJFOC-20080102772

PATIENT
  Age: 77 Year
  Sex: Female
  Weight: 44.4525 kg

DRUGS (1)
  1. DACOGEN [Suspect]
     Indication: MYELODYSPLASTIC SYNDROME
     Dosage: , 1 IN 1 DAY, INTRAVENOUS
     Route: 042
     Dates: start: 20080110, end: 20080110

REACTIONS (2)
  - EXTRAVASATION [None]
  - INFUSION SITE SWELLING [None]
